FAERS Safety Report 7504812-7 (Version None)
Quarter: 2011Q2

REPORT INFORMATION
  Report Type: 
  Country: None (occurrence: None)
  Receive Date: 20110525
  Receipt Date: 20110413
  Transmission Date: 20111010
  Serious: Yes (Other)
  Sender: FDA-Public Use
  Company Number: US-AMGEN-USASP2011013211

PATIENT
  Age: 62 Year
  Sex: Male
  Weight: 105.22 kg

DRUGS (2)
  1. ARANESP [Suspect]
     Dates: start: 20100701
  2. ARANESP [Suspect]
     Indication: RENAL FAILURE CHRONIC
     Dosage: 60 A?G, Q2WK
     Route: 058
     Dates: start: 20100714, end: 20110309

REACTIONS (1)
  - HAEMOGLOBIN DECREASED [None]
